FAERS Safety Report 6435548-1 (Version None)
Quarter: 2009Q4

REPORT INFORMATION
  Report Type: 
  Country: None (occurrence: None)
  Receive Date: 20091111
  Receipt Date: 20091105
  Transmission Date: 20100525
  Serious: Yes (Hospitalization)
  Sender: FDA-Public Use
  Company Number: FR-WYE-G04807909

PATIENT
  Sex: Female

DRUGS (10)
  1. EFFEXOR [Suspect]
     Route: 048
     Dates: end: 20091001
  2. LASILIX [Concomitant]
     Route: 048
     Dates: end: 20091001
  3. RIVOTRIL [Concomitant]
     Route: 048
  4. VITAMINE B1 B6 BAYER [Concomitant]
     Route: 048
  5. NEXIUM [Concomitant]
     Route: 048
     Dates: end: 20091001
  6. IXPRIM [Concomitant]
     Route: 048
     Dates: end: 20090101
  7. ISOPTIN - SLOW RELEASE [Concomitant]
     Route: 048
  8. LEVEMIR [Concomitant]
     Dosage: 18 UNIT EVERY 1 DAY
  9. PLAVIX [Suspect]
     Route: 048
     Dates: end: 20091001
  10. ZOCOR [Concomitant]
     Route: 048
     Dates: end: 20091001

REACTIONS (8)
  - CEREBRAL HAEMATOMA [None]
  - CONFUSIONAL STATE [None]
  - CREATININE RENAL CLEARANCE DECREASED [None]
  - DISORIENTATION [None]
  - FALL [None]
  - RADIUS FRACTURE [None]
  - SUBDURAL HAEMATOMA [None]
  - WOUND [None]
